FAERS Safety Report 24192860 (Version 2)
Quarter: 2024Q4

REPORT INFORMATION
  Report Type: Report from Study
  Country: US (occurrence: US)
  Receive Date: 20240809
  Receipt Date: 20241224
  Transmission Date: 20250114
  Serious: Yes (Other)
  Sender: ABBVIE
  Company Number: US-ABBVIE-5872332

PATIENT
  Age: 55 Year
  Sex: Male

DRUGS (1)
  1. CREON [Suspect]
     Active Substance: PANCRELIPASE AMYLASE\PANCRELIPASE LIPASE\PANCRELIPASE PROTEASE
     Indication: Product used for unknown indication
     Route: 048
     Dates: start: 20140101

REACTIONS (5)
  - Pancreaticoduodenectomy [Unknown]
  - Weight decreased [Unknown]
  - Abdominal distension [Unknown]
  - Nephrolithiasis [Unknown]
  - Multiple allergies [Unknown]

NARRATIVE: CASE EVENT DATE: 20140101
